FAERS Safety Report 10721372 (Version 2)
Quarter: 2015Q1

REPORT INFORMATION
  Report Type: Spontaneous
  Country: DE (occurrence: DE)
  Receive Date: 20150119
  Receipt Date: 20150213
  Transmission Date: 20150721
  Serious: Yes (Death, Hospitalization)
  Sender: FDA-Public Use
  Company Number: DE-ABBVIE-15K-062-1333484-00

PATIENT
  Age: 71 Year
  Sex: Male

DRUGS (2)
  1. HUMIRA [Suspect]
     Active Substance: ADALIMUMAB
     Route: 058
     Dates: start: 201411
  2. HUMIRA [Suspect]
     Active Substance: ADALIMUMAB
     Indication: PSORIASIS
     Route: 058
     Dates: start: 201406, end: 20141125

REACTIONS (19)
  - Multi-organ failure [Fatal]
  - Hypotension [Unknown]
  - Cardiovascular insufficiency [Unknown]
  - Cardiovascular disorder [Unknown]
  - Pulseless electrical activity [Unknown]
  - Condition aggravated [Fatal]
  - Bronchitis chronic [Unknown]
  - Pulmonary fibrosis [Fatal]
  - Organising pneumonia [Fatal]
  - Hyperhidrosis [Unknown]
  - Dyspnoea exertional [Unknown]
  - Bradycardia [Unknown]
  - Pneumonia [Fatal]
  - Leukocytosis [Unknown]
  - C-reactive protein increased [Recovering/Resolving]
  - Transaminases increased [Unknown]
  - Blood lactate dehydrogenase increased [Unknown]
  - Oxygen saturation decreased [Unknown]
  - Acute kidney injury [Unknown]

NARRATIVE: CASE EVENT DATE: 201411
